FAERS Safety Report 21713554 (Version 1)
Quarter: 2022Q4

REPORT INFORMATION
  Report Type: Spontaneous
  Country: US (occurrence: None)
  Receive Date: 20221208
  Receipt Date: 20221208
  Transmission Date: 20230112
  Serious: Yes (Life-Threatening)
  Sender: FDA-Public Use
  Company Number: None

PATIENT
  Age: 65 Year
  Sex: Male
  Weight: 83 kg

DRUGS (1)
  1. ISATUXIMAB-IRFC [Suspect]
     Active Substance: ISATUXIMAB-IRFC
     Indication: Plasma cell myeloma
     Dosage: FREQUENCY : ONCE;?
     Route: 042
     Dates: start: 20220729

REACTIONS (9)
  - Dyspnoea [None]
  - Stridor [None]
  - Infusion related reaction [None]
  - Rash [None]
  - Anaphylactic reaction [None]
  - Hypertension [None]
  - Tachypnoea [None]
  - Respiratory depression [None]
  - Drug hypersensitivity [None]

NARRATIVE: CASE EVENT DATE: 20220729
